FAERS Safety Report 6366783-9 (Version None)
Quarter: 2009Q3

REPORT INFORMATION
  Report Type: 
  Country: None (occurrence: None)
  Receive Date: 20090921
  Receipt Date: 20090910
  Transmission Date: 20100115
  Serious: Yes (Hospitalization)
  Sender: FDA-Public Use
  Company Number: CA-JNJFOC-20090904272

PATIENT
  Sex: Female
  Weight: 62.4 kg

DRUGS (16)
  1. REMICADE [Suspect]
     Route: 042
     Dates: end: 20090910
  2. REMICADE [Suspect]
     Indication: RHEUMATOID ARTHRITIS
     Route: 042
     Dates: end: 20090910
  3. FOLIC ACID [Concomitant]
     Indication: DRUG TOXICITY
     Route: 048
  4. ACETAMINOPHEN [Concomitant]
     Indication: SCIATICA
     Route: 048
  5. ACETAMINOPHEN [Concomitant]
     Indication: RHEUMATOID ARTHRITIS
     Route: 048
  6. VITAMIN D [Concomitant]
     Route: 048
  7. METHOTREXATE [Concomitant]
     Route: 048
  8. METHOTREXATE [Concomitant]
     Indication: RHEUMATOID ARTHRITIS
     Route: 048
  9. CELEBREX [Concomitant]
     Route: 048
  10. CIPRO [Concomitant]
     Indication: URINARY TRACT INFECTION
     Route: 048
  11. TYLENOL (CAPLET) [Concomitant]
     Dosage: 500MG 2 TAB BID
     Route: 048
  12. TYLENOL (CAPLET) [Concomitant]
     Dosage: 500 MG 2 TAB TID
     Route: 048
  13. TYLENOL (CAPLET) [Concomitant]
     Route: 048
  14. TYLENOL (CAPLET) [Concomitant]
     Dosage: 650 MG 2 TABS TID
     Route: 048
  15. TYLENOL (CAPLET) [Concomitant]
     Indication: RHEUMATOID ARTHRITIS
     Dosage: 500 MG 2 TAB EVERY 4 HOURS
     Route: 048
  16. TYLENOL (CAPLET) [Concomitant]
     Indication: SCIATICA
     Route: 048

REACTIONS (3)
  - ABDOMINAL PAIN UPPER [None]
  - OSTEOARTHRITIS [None]
  - PULMONARY MASS [None]
